FAERS Safety Report 11877788 (Version 2)
Quarter: 2016Q1

REPORT INFORMATION
  Report Type: Report from Study
  Country: DE (occurrence: DE)
  Receive Date: 20151230
  Receipt Date: 20160121
  Transmission Date: 20160526
  Serious: Yes (Other)
  Sender: FDA-Public Use
  Company Number: DE-ROCHE-1685630

PATIENT
  Sex: Female

DRUGS (6)
  1. PREDNISOLONE. [Suspect]
     Active Substance: PREDNISOLONE
     Indication: B-CELL LYMPHOMA
     Dosage: LAST DOSE GIVEN PRIOR TO SAE: 20/NOV/2015
     Route: 048
     Dates: start: 20151023
  2. VINCRISTINE [Suspect]
     Active Substance: VINCRISTINE
     Indication: B-CELL LYMPHOMA
     Dosage: ON 20/NOV/2015,RECEIEVD LAST DOSE PRIOR TO SAE.
     Route: 042
     Dates: start: 20151023
  3. RITUXIMAB [Suspect]
     Active Substance: RITUXIMAB
     Indication: B-CELL LYMPHOMA
     Dosage: LAST DOSE GIVEN PRIOR TO SAE: 19/NOV/2015
     Route: 042
     Dates: start: 20151021
  4. CYCLOPHOSPHAMIDE. [Suspect]
     Active Substance: CYCLOPHOSPHAMIDE
     Indication: B-CELL LYMPHOMA
     Dosage: LAST DOSE GIVEN PRIOR TO SAE: 20/NOV/2015
     Route: 042
     Dates: start: 20151023
  5. PEGFILGRASTIM [Suspect]
     Active Substance: PEGFILGRASTIM
     Indication: B-CELL LYMPHOMA
     Dosage: DAY 4 OF CYCLE, ON 20/NOV/2015,RECEIEVD LAST DOSE PRIOR TO SAE.
     Route: 058
     Dates: start: 20151027
  6. DOXORUBICINE [Suspect]
     Active Substance: DOXORUBICIN
     Indication: B-CELL LYMPHOMA
     Dosage: LAST DOSE GIVEN PRIOR TO SAE: 20/NOV/2015
     Route: 042
     Dates: start: 20151023

REACTIONS (1)
  - Pelvic venous thrombosis [Unknown]

NARRATIVE: CASE EVENT DATE: 20151130
